FAERS Safety Report 22170911 (Version 1)
Quarter: 2023Q2

REPORT INFORMATION
  Report Type: Spontaneous
  Country: IT (occurrence: IT)
  Receive Date: 20230404
  Receipt Date: 20230404
  Transmission Date: 20230721
  Serious: Yes (Hospitalization, Other)
  Sender: FDA-Public Use
  Company Number: IT-MINISAL02-915671

PATIENT
  Age: 65 Year
  Sex: Female
  Weight: 83 kg

DRUGS (2)
  1. OXALIPLATIN [Suspect]
     Active Substance: OXALIPLATIN
     Indication: Adenocarcinoma of colon
     Dosage: 240 MILLIGRAM (240MG EVERY 21 DAYS)
     Route: 042
     Dates: start: 20230217, end: 20230217
  2. CAPECITABINE [Suspect]
     Active Substance: CAPECITABINE
     Indication: Adenocarcinoma of colon
     Dosage: 3500 MILLIGRAM, TWO TIMES A DAY (3500MG TWICE DAILY EVERY 15 DAYS)
     Route: 048
     Dates: start: 20230218, end: 20230228

REACTIONS (4)
  - Diarrhoea [Recovering/Resolving]
  - Nausea [Recovering/Resolving]
  - Abdominal pain upper [Recovering/Resolving]
  - Neurotoxicity [Recovering/Resolving]

NARRATIVE: CASE EVENT DATE: 20230228
